FAERS Safety Report 5220731-3 (Version None)
Quarter: 2007Q1

REPORT INFORMATION
  Report Type: 
  Country: None (occurrence: None)
  Receive Date: 20070126
  Receipt Date: 20070117
  Transmission Date: 20070707
  Serious: Yes (Disabling)
  Sender: FDA-Public Use
  Company Number: 2007AP00543

PATIENT
  Sex: Male

DRUGS (2)
  1. IRESSA [Suspect]
     Indication: LUNG NEOPLASM MALIGNANT
     Route: 048
     Dates: start: 20031201, end: 20061201
  2. IRESSA [Suspect]
     Dosage: 2 WEEK ON 2 WEEK OFF SCHEDULE
     Route: 048
     Dates: start: 20061201, end: 20070116

REACTIONS (2)
  - CORNEAL DISORDER [None]
  - VISUAL ACUITY REDUCED [None]
